FAERS Safety Report 9380053 (Version 3)
Quarter: 2013Q3

REPORT INFORMATION
  Report Type: Spontaneous
  Country: JP (occurrence: JP)
  Receive Date: 20130702
  Receipt Date: 20130725
  Transmission Date: 20140515
  Serious: Yes (Hospitalization)
  Sender: FDA-Public Use
  Company Number: JP-ABBOTT-13X-087-1112267-00

PATIENT
  Sex: 0

DRUGS (3)
  1. LANSAP 800 [Suspect]
     Indication: HELICOBACTER INFECTION
     Dosage: 1 CARD (0.5 CARD)
     Route: 048
     Dates: start: 20130608, end: 20130613
  2. LANSAP 800 [Suspect]
     Indication: HELICOBACTER INFECTION
     Dosage: 1 CARD (0.5 CARD)
     Route: 048
     Dates: start: 20130608, end: 20130613
  3. AMOXICILLIN [Suspect]
     Indication: HELICOBACTER INFECTION
     Dosage: 1 CARD (0.5 CARD)
     Route: 048
     Dates: start: 20130608, end: 20130613

REACTIONS (2)
  - Melaena [Unknown]
  - Diarrhoea [Not Recovered/Not Resolved]
